FAERS Safety Report 4687667-8 (Version None)
Quarter: 2005Q2

REPORT INFORMATION
  Report Type: 
  Country: None (occurrence: None)
  Receive Date: 20050608
  Receipt Date: 20050608
  Transmission Date: 20051028
  Serious: Yes (Hospitalization)
  Sender: FDA-Public Use
  Company Number: None

PATIENT
  Sex: Male
  Weight: 96.1626 kg

DRUGS (4)
  1. BCNU 80MG/M2 [Suspect]
     Indication: CHEMOTHERAPY
     Dosage: 510 MG DAYS 1,2,3 IV
     Route: 042
     Dates: start: 20041130, end: 20041202
  2. DECADRON [Suspect]
     Indication: BRAIN OEDEMA
     Dosage: 10 MG/DAY
     Dates: start: 20040201, end: 20040217
  3. PROTONIX [Concomitant]
  4. DILANTIN [Concomitant]

REACTIONS (1)
  - PAIN IN EXTREMITY [None]
